FAERS Safety Report 17481052 (Version 1)
Quarter: 2020Q1

REPORT INFORMATION
  Report Type: Spontaneous
  Country: US (occurrence: US)
  Receive Date: 20200302
  Receipt Date: 20200302
  Transmission Date: 20200409
  Serious: No
  Sender: FDA-Public Use
  Company Number: US-HETERO-HET2020US00266

PATIENT
  Sex: Female

DRUGS (2)
  1. OSELTAMIVIR [Suspect]
     Active Substance: OSELTAMIVIR
     Dosage: 75 MG, QD
     Route: 065
     Dates: start: 20200222
  2. OSELTAMIVIR [Suspect]
     Active Substance: OSELTAMIVIR
     Indication: PRODUCT USED FOR UNKNOWN INDICATION
     Dosage: 75 MG, BID
     Route: 065
     Dates: start: 20200221

REACTIONS (1)
  - Genital rash [Unknown]

NARRATIVE: CASE EVENT DATE: 20200222
